FAERS Safety Report 6600720-4 (Version None)
Quarter: 2010Q1

REPORT INFORMATION
  Report Type: 
  Country: None (occurrence: None)
  Receive Date: 20100223
  Receipt Date: 20100223
  Transmission Date: 20100710
  Serious: Yes (Other)
  Sender: FDA-Public Use
  Company Number: None

PATIENT
  Age: 53 Year
  Sex: Male
  Weight: 76.2043 kg

DRUGS (2)
  1. MELOXICAM [Suspect]
     Indication: INFLAMMATION
     Dosage: 1 TABLET DAILY PO
     Route: 048
     Dates: start: 20100213, end: 20100214
  2. MELOXICAM [Suspect]
     Indication: SPINAL DISORDER
     Dosage: 1 TABLET DAILY PO
     Route: 048
     Dates: start: 20100213, end: 20100214

REACTIONS (1)
  - URINARY TRACT INFECTION [None]
